FAERS Safety Report 8260446-0 (Version None)
Quarter: 2012Q2

REPORT INFORMATION
  Report Type: 
  Country: None (occurrence: None)
  Receive Date: 20120404
  Receipt Date: 20110822
  Transmission Date: 20120825
  Serious: Yes (Hospitalization)
  Sender: FDA-Public Use
  Company Number: PHHO2011GB14124

PATIENT
  Sex: Male
  Weight: 82 kg

DRUGS (2)
  1. ALISKIREN [Suspect]
     Indication: CARDIAC FAILURE
     Dosage: UNK
     Route: 048
     Dates: start: 20111114, end: 20110812
  2. BUMETANIDE [Suspect]
     Route: 048

REACTIONS (2)
  - INFECTION [None]
  - GOUT [None]
